FAERS Safety Report 8909276 (Version 2)
Quarter: 2012Q4

REPORT INFORMATION
  Report Type: Spontaneous
  Country: US (occurrence: None)
  Receive Date: 20121018
  Receipt Date: 20121115
  Transmission Date: 20130627
  Serious: Yes (Death)
  Sender: FDA-Public Use
  Company Number: 2012PROUSA02104

PATIENT
  Age: 86 Year
  Sex: Male

DRUGS (8)
  1. PROVENGE (SIPULEUCEL-T) SUSPENSION, 250ML [Suspect]
     Indication: PROSTATE CANCER METASTATIC
     Dosage: 250 ml, single, Intravenous
     Route: 042
     Dates: start: 20120924, end: 20120924
  2. LASIX (FUROSEMIDE) [Concomitant]
  3. CENTRUM (ASCORBIC ACID, BIOTIN, CALCIUM PANTHOTHNATE, CYANOCOBALAMIN, ERGOCALCIFEROL, IRON, NICOTINAMIDE, PYRIDOXINE HYDROCHLORIDE, RETINOL, RIBOFLAVIN, THIAMINE HYDROCHLORIDE, TOCOPHERYL ACETATE) [Concomitant]
  4. CALCIUM PLUST VITAMIN D (CALCIUM, COLECALCIFEROL) [Concomitant]
  5. DETROL (TOLTERODINE L-TARTRATE) [Concomitant]
  6. ASPIRIN (ACETYLSALICYLIC ACID) [Concomitant]
  7. XGEVA (DENOSUMAB) [Concomitant]
  8. GLIPIZIDE (GLIPIZIDE) [Concomitant]

REACTIONS (2)
  - Myocardial infarction [None]
  - Cardio-respiratory arrest [None]
